FAERS Safety Report 21811466 (Version 2)
Quarter: 2023Q1

REPORT INFORMATION
  Report Type: Spontaneous
  Country: TR (occurrence: TR)
  Receive Date: 20230103
  Receipt Date: 20230111
  Transmission Date: 20230417
  Serious: Yes (Other)
  Sender: FDA-Public Use
  Company Number: TR-002147023-NVSC2022TR302189

PATIENT
  Age: 34 Year
  Sex: Female

DRUGS (1)
  1. ILARIS [Suspect]
     Active Substance: CANAKINUMAB
     Indication: Neuropathic arthropathy
     Dosage: UNK, QMO
     Route: 065

REACTIONS (4)
  - Acute coronary syndrome [Unknown]
  - Pain [Unknown]
  - Product supply issue [Unknown]
  - Off label use [Unknown]
